FAERS Safety Report 4802202-9 (Version None)
Quarter: 2005Q4

REPORT INFORMATION
  Report Type: 
  Country: None (occurrence: None)
  Receive Date: 20051011
  Receipt Date: 20031202
  Transmission Date: 20060501
  Serious: Yes (Hospitalization, Other)
  Sender: FDA-Public Use
  Company Number: KII-2003-0018901

PATIENT
  Age: 30 Year
  Sex: Male

DRUGS (7)
  1. OXYCONTIN [Suspect]
     Dosage: SEE TEXT, ORAL
     Route: 048
  2. ACETAMINOPHEN AND OXYCODONE HCL [Suspect]
     Dosage: SEE TEXT, ORAL
     Route: 048
  3. AMPHETAMINE SULFATE [Suspect]
     Dosage: SEE TEXT, ORAL
     Route: 048
  4. METHADONE HCL [Suspect]
  5. TRAZODONE HCL [Suspect]
     Dosage: ORAL
     Route: 048
  6. TRICYCLIC ANTIDEPRESSANTS() [Suspect]
  7. SSRI () [Suspect]

REACTIONS (11)
  - ABDOMINAL PAIN [None]
  - ASTHENIA [None]
  - DEHYDRATION [None]
  - DIARRHOEA [None]
  - DRUG SCREEN POSITIVE [None]
  - HEART RATE INCREASED [None]
  - LEUKOCYTOSIS [None]
  - MENTAL STATUS CHANGES [None]
  - MULTIPLE DRUG OVERDOSE ACCIDENTAL [None]
  - ORAL INTAKE REDUCED [None]
  - PYREXIA [None]
